FAERS Safety Report 5300047-7 (Version None)
Quarter: 2007Q2

REPORT INFORMATION
  Report Type: 
  Country: None (occurrence: None)
  Receive Date: 20070410
  Receipt Date: 20070330
  Transmission Date: 20071010
  Serious: Yes (Life-Threatening, Hospitalization)
  Sender: FDA-Public Use
  Company Number: B0461795A

PATIENT
  Age: 14 Year
  Sex: Male
  Weight: 34.927 kg

DRUGS (1)
  1. RELENZA [Suspect]
     Indication: INFLUENZA LIKE ILLNESS
     Dosage: 10 MG / TWICE PER DAY / INHALED
     Route: 055
     Dates: start: 20070303, end: 20070305

REACTIONS (4)
  - DYSPNOEA [None]
  - LARYNGEAL OEDEMA [None]
  - LARYNGEAL STENOSIS [None]
  - PHARYNGOLARYNGEAL PAIN [None]
